FAERS Safety Report 16479351 (Version 12)
Quarter: 2022Q1

REPORT INFORMATION
  Report Type: Report from Study
  Country: NL (occurrence: NL)
  Receive Date: 20190626
  Receipt Date: 20220315
  Transmission Date: 20220423
  Serious: Yes (Other)
  Sender: FDA-Public Use
  Company Number: NL-ABBVIE-19S-114-2747083-00

PATIENT
  Sex: Female

DRUGS (9)
  1. CARBIDOPA\LEVODOPA [Suspect]
     Active Substance: CARBIDOPA\LEVODOPA
     Indication: Parkinson^s disease
     Dosage: MD: 10.0, CD: 2.5, ED: 2.0
     Route: 050
     Dates: start: 20170401
  2. CARBIDOPA\LEVODOPA [Suspect]
     Active Substance: CARBIDOPA\LEVODOPA
     Dosage: MD: 10.0ML; CD: 2.6ML/H, ED: 2.0ML
     Route: 050
  3. CARBIDOPA\LEVODOPA [Suspect]
     Active Substance: CARBIDOPA\LEVODOPA
     Dosage: MD: 10.0ML, CD: 2.5ML/H, ED: 2.0ML
     Route: 050
  4. LAXANS [Concomitant]
     Indication: Abnormal faeces
  5. BENSERAZIDE HYDROCHLORIDE\LEVODOPA [Concomitant]
     Active Substance: BENSERAZIDE HYDROCHLORIDE\LEVODOPA
     Indication: Parkinson^s disease
     Dosage: FOR THE NIGHT
  6. POLYETHYLENE GLYCOLS [Concomitant]
     Active Substance: POLYETHYLENE GLYCOLS
     Indication: Abnormal faeces
  7. MOVICOLON [Concomitant]
     Active Substance: POLYETHYLENE GLYCOL 3350\POTASSIUM CHLORIDE\SODIUM BICARBONATE\SODIUM CHLORIDE
     Indication: Abnormal faeces
  8. MOVICOLON [Concomitant]
     Active Substance: POLYETHYLENE GLYCOL 3350\POTASSIUM CHLORIDE\SODIUM BICARBONATE\SODIUM CHLORIDE
     Dosage: 0.5 SACHET
  9. BENSERAZIDE HYDROCHLORIDE\LEVODOPA [Concomitant]
     Active Substance: BENSERAZIDE HYDROCHLORIDE\LEVODOPA
     Indication: Parkinson^s disease
     Dosage: MODIFIED-RELEASE CAPSULE, HARD? FOR THE NIGHT

REACTIONS (47)
  - Venous stenosis [Recovered/Resolved]
  - Stent placement [Unknown]
  - Coronary artery occlusion [Not Recovered/Not Resolved]
  - Vascular graft [Recovering/Resolving]
  - Arrhythmia [Unknown]
  - Myocardial infarction [Recovered/Resolved]
  - Hypophagia [Recovered/Resolved]
  - Memory impairment [Not Recovered/Not Resolved]
  - Loss of personal independence in daily activities [Not Recovered/Not Resolved]
  - Dependent personality disorder [Not Recovered/Not Resolved]
  - Nocturia [Not Recovered/Not Resolved]
  - Ageusia [Not Recovered/Not Resolved]
  - Anal incontinence [Recovered/Resolved]
  - Mobility decreased [Not Recovered/Not Resolved]
  - Hypophagia [Recovered/Resolved]
  - Cognitive disorder [Unknown]
  - Balance disorder [Unknown]
  - Tension [Not Recovered/Not Resolved]
  - Fibroma [Recovered/Resolved]
  - Feeling abnormal [Not Recovered/Not Resolved]
  - Contusion [Recovered/Resolved]
  - Infrequent bowel movements [Unknown]
  - Abnormal faeces [Recovered/Resolved]
  - Hypoaesthesia [Not Recovered/Not Resolved]
  - Respiration abnormal [Not Recovered/Not Resolved]
  - Device issue [Unknown]
  - Stress [Not Recovered/Not Resolved]
  - Gait disturbance [Not Recovered/Not Resolved]
  - Malaise [Not Recovered/Not Resolved]
  - Fatigue [Not Recovered/Not Resolved]
  - Dyspnoea [Unknown]
  - Fall [Recovered/Resolved]
  - Stoma site discharge [Recovered/Resolved]
  - Medical device discomfort [Unknown]
  - Orthostatic hypotension [Not Recovered/Not Resolved]
  - Middle insomnia [Not Recovered/Not Resolved]
  - Initial insomnia [Not Recovered/Not Resolved]
  - Stoma site erythema [Unknown]
  - On and off phenomenon [Not Recovered/Not Resolved]
  - Dyskinesia [Not Recovered/Not Resolved]
  - Hallucination, visual [Not Recovered/Not Resolved]
  - Stoma site inflammation [Recovered/Resolved]
  - Muscle rigidity [Not Recovered/Not Resolved]
  - Constipation [Unknown]
  - Dizziness [Not Recovered/Not Resolved]
  - Unevaluable event [Not Recovered/Not Resolved]
  - Memory impairment [Not Recovered/Not Resolved]

NARRATIVE: CASE EVENT DATE: 20190101
